FAERS Safety Report 25900258 (Version 1)
Quarter: 2025Q4

REPORT INFORMATION
  Report Type: Spontaneous
  Country: US (occurrence: None)
  Receive Date: 20251008
  Receipt Date: 20251008
  Transmission Date: 20260117
  Serious: Yes (Hospitalization)
  Sender: FDA-CTU
  Company Number: None

PATIENT
  Age: 71 Year
  Sex: Female

DRUGS (10)
  1. BENLYSTA [Suspect]
     Active Substance: BELIMUMAB
     Indication: Systemic lupus erythematosus
     Dosage: FREQUENCY : WEEKLY;?
     Route: 058
     Dates: start: 20231220
  2. ADVAIR HFA [Concomitant]
     Active Substance: FLUTICASONE PROPIONATE\SALMETEROL XINAFOATE
  3. AMLODIPINE TAB5MG [Concomitant]
  4. BUSPIRONE TAB 15MG [Concomitant]
  5. HYDRALAZINE [Concomitant]
     Active Substance: HYDRALAZINE HYDROCHLORIDE
  6. HYDROXYCHLOROQUINE [Concomitant]
     Active Substance: HYDROXYCHLOROQUINE
  7. LEVOTHYROXIN TAB 75MCG [Concomitant]
  8. LISINOPRIL TAB 40MG [Concomitant]
  9. METOPROL TAR TAB 50MG [Concomitant]
  10. VENTOLIN HFA [Concomitant]
     Active Substance: ALBUTEROL SULFATE

REACTIONS (3)
  - Cellulitis [None]
  - Therapy cessation [None]
  - Systemic lupus erythematosus [None]

NARRATIVE: CASE EVENT DATE: 20250817
